FAERS Safety Report 13911740 (Version 1)
Quarter: 2017Q3

REPORT INFORMATION
  Report Type: Spontaneous
  Country: US (occurrence: US)
  Receive Date: 20170828
  Receipt Date: 20170828
  Transmission Date: 20171127
  Serious: Yes (Other)
  Sender: FDA-Public Use
  Company Number: US-BAYER-2017-157176

PATIENT
  Age: 71 Year
  Sex: Female
  Weight: 53 kg

DRUGS (9)
  1. LOSARTAN. [Concomitant]
     Active Substance: LOSARTAN
  2. MIRAFIBER CAPLETS [Suspect]
     Active Substance: CITRIC ACID MONOHYDRATE\METHYLCELLULOSE
     Indication: GASTROINTESTINAL DISORDER
     Dosage: 2 DF, QD
     Route: 048
  3. SYNTHROID [Concomitant]
     Active Substance: LEVOTHYROXINE SODIUM
  4. BAYER ASPIRIN 500 MG [Suspect]
     Active Substance: ASPIRIN
     Indication: PAIN
     Dosage: 1 DF, QD NIGHTLY
     Route: 048
  5. ACETAMINOPHEN W/HYDROCODONE [Concomitant]
     Active Substance: ACETAMINOPHEN\HYDROCODONE
     Indication: PAIN
     Dosage: 3 DF, QD,
  6. PHILLIPS^ LAXATIVE DIETARY SUPPLEMENT [Suspect]
     Active Substance: MAGNESIUM OXIDE
     Indication: GASTROINTESTINAL DISORDER
     Dosage: 2 DF, QD
     Route: 048
     Dates: start: 2017, end: 20170815
  7. PHILLIPS^ LAXATIVE DIETARY SUPPLEMENT [Suspect]
     Active Substance: MAGNESIUM OXIDE
     Indication: CONSTIPATION
  8. MIRAFIBER CAPLETS [Suspect]
     Active Substance: CITRIC ACID MONOHYDRATE\METHYLCELLULOSE
     Indication: CONSTIPATION
  9. BENEFIBER [Concomitant]
     Active Substance: STARCH, WHEAT
     Dosage: 2 DF (TABLESPOONS), QD
     Route: 048

REACTIONS (4)
  - Haemorrhage [Unknown]
  - Contusion [Unknown]
  - Incorrect drug administration duration [Unknown]
  - Skin discolouration [Unknown]
